FAERS Safety Report 16545239 (Version 1)
Quarter: 2019Q3

REPORT INFORMATION
  Report Type: Spontaneous
  Country: AT (occurrence: AT)
  Receive Date: 20190709
  Receipt Date: 20190709
  Transmission Date: 20191004
  Serious: Yes (Hospitalization)
  Sender: FDA-Public Use
  Company Number: AT-BIOGEN-2019BI00758061

PATIENT
  Sex: Female

DRUGS (1)
  1. TECFIDERA [Suspect]
     Active Substance: DIMETHYL FUMARATE
     Indication: MULTIPLE SCLEROSIS
     Route: 048
     Dates: start: 20181023

REACTIONS (6)
  - Leukaemia [Unknown]
  - Asthenia [Unknown]
  - Lymphopenia [Unknown]
  - Hypotonia [Unknown]
  - Pallor [Unknown]
  - Anaemia [Unknown]
